FAERS Safety Report 14252869 (Version 5)
Quarter: 2018Q2

REPORT INFORMATION
  Report Type: Spontaneous
  Country: JP (occurrence: JP)
  Receive Date: 20171206
  Receipt Date: 20180417
  Transmission Date: 20180711
  Serious: Yes (Other)
  Sender: FDA-Public Use
  Company Number: JP-BEH-2017085590

PATIENT
  Age: 92 Year
  Sex: Female
  Weight: 36 kg

DRUGS (3)
  1. KCENTRA [Suspect]
     Active Substance: COAGULATION FACTOR IX HUMAN\COAGULATION FACTOR VII HUMAN\COAGULATION FACTOR X HUMAN\PROTEIN C\PROTEIN S HUMAN\PROTHROMBIN
     Indication: SUBDURAL HAEMATOMA
     Dosage: 1850 IU, UNK
     Route: 042
     Dates: start: 20171109, end: 20171109
  2. LIXIANA [Concomitant]
     Active Substance: EDOXABAN TOSYLATE
     Indication: ANTICOAGULANT THERAPY
     Dosage: 30 MG, UNK
     Route: 065
     Dates: start: 20171114
  3. VITAMIN K [Concomitant]
     Active Substance: PHYTONADIONE
     Indication: SUBDURAL HAEMATOMA
     Dosage: UNK
     Route: 042
     Dates: start: 20171109, end: 20171109

REACTIONS (1)
  - Cerebral infarction [Recovering/Resolving]

NARRATIVE: CASE EVENT DATE: 20171112
